FAERS Safety Report 5714897-6 (Version None)
Quarter: 2008Q2

REPORT INFORMATION
  Report Type: 
  Country: None (occurrence: None)
  Receive Date: 20080423
  Receipt Date: 20070918
  Transmission Date: 20081010
  Serious: Yes (Other)
  Sender: FDA-Public Use
  Company Number: US-BAYER-US-2007-035181

PATIENT
  Age: 38 Year
  Sex: Female
  Weight: 70 kg

DRUGS (5)
  1. LEUKINE [Suspect]
     Indication: BREAST CANCER
     Route: 058
     Dates: start: 20070913, end: 20070914
  2. DOXORUBICIN HCL [Concomitant]
     Route: 042
     Dates: start: 20070912
  3. CYTOXAN [Concomitant]
     Route: 042
     Dates: start: 20070912
  4. KYTRIL [Concomitant]
     Route: 042
     Dates: start: 20070912
  5. DECADRON /NET/ [Concomitant]
     Route: 042

REACTIONS (6)
  - CHEST DISCOMFORT [None]
  - COUGH [None]
  - DYSPNOEA [None]
  - FEELING HOT [None]
  - HYPOTENSION [None]
  - HYPOXIA [None]
